FAERS Safety Report 21974129 (Version 3)
Quarter: 2023Q2

REPORT INFORMATION
  Report Type: Other
  Country: IN (occurrence: None)
  Receive Date: 20230209
  Receipt Date: 20230503
  Transmission Date: 20230722
  Serious: Yes (Hospitalization, Disabling, Other)
  Sender: FDA-Public Use
  Company Number: IN-ROCHE-3172307

PATIENT
  Age: 69 Year
  Sex: Male

DRUGS (1)
  1. TECENTRIQ [Suspect]
     Active Substance: ATEZOLIZUMAB
     Indication: Hepatocellular carcinoma
     Route: 042
     Dates: start: 20220827

REACTIONS (6)
  - Off label use [Unknown]
  - Loss of consciousness [Unknown]
  - Hypotension [Unknown]
  - Hepatic failure [Unknown]
  - Off label use [Unknown]
  - Fatigue [Unknown]
